FAERS Safety Report 8604924 (Version 6)
Quarter: 2013Q2

REPORT INFORMATION
  Report Type: Spontaneous
  Country: US (occurrence: US)
  Receive Date: 20120608
  Receipt Date: 20130412
  Transmission Date: 20140414
  Serious: Yes (Other)
  Sender: FDA-Public Use
  Company Number: US-PFIZER INC-2012135866

PATIENT
  Age: 36 Year
  Sex: Female
  Weight: 116 kg

DRUGS (21)
  1. LYRICA [Suspect]
     Indication: FIBROMYALGIA
     Dosage: 150 MG, 2X/DAY
     Route: 048
     Dates: start: 20040901
  2. CELEBREX [Suspect]
     Indication: ARTHRITIS
     Dosage: UNK
  3. CELEBREX [Suspect]
     Dosage: 200 MG, 2X/DAY
  4. DILANTIN [Suspect]
     Dosage: UNK
  5. EFFEXOR XR [Suspect]
     Indication: DEPRESSION
     Dosage: UNK
  6. EFFEXOR XR [Suspect]
     Dosage: 150 MG, 1X/DAY
  7. INDERAL [Concomitant]
     Dosage: UNK
  8. ZANAFLEX [Concomitant]
     Dosage: UNK
  9. ZANAFLEX [Concomitant]
     Dosage: 4 MG, AS NEEDED
  10. DESYREL [Concomitant]
     Dosage: UNK
  11. LASIX [Concomitant]
     Dosage: 40 MG, 1X/DAY
  12. VITAMIN D [Concomitant]
     Dosage: 1000 IU, 2X/DAY
  13. KLONOPIN [Concomitant]
     Dosage: 1MG IN MORNING AND 2MG AT BEDTIME
  14. SYNTHROID [Concomitant]
     Indication: HYPOTHYROIDISM
     Dosage: 0.175 MG, 1X/DAY
  15. TRAZODONE [Concomitant]
     Dosage: 150 MG, 1X/DAY
  16. MECLIZINE [Concomitant]
     Dosage: 25 MG, AS NEEDED
  17. MONTELUKAST [Concomitant]
     Dosage: 10 MG, 1X/DAY
  18. FIORINAL [Concomitant]
     Indication: PAIN
     Dosage: UNK, AS NEEDED
  19. ULTRAM [Concomitant]
     Indication: PAIN
     Dosage: 50 MG, AS NEEDED
  20. LORTAB [Concomitant]
     Indication: PAIN
     Dosage: UNK, AS NEEDED
  21. PROAIR HFA [Concomitant]
     Dosage: UNK, AS NEEDED

REACTIONS (6)
  - Joint injury [Unknown]
  - Walking aid user [Unknown]
  - Head injury [Unknown]
  - Accident [Unknown]
  - Brain injury [Not Recovered/Not Resolved]
  - Amnesia [Not Recovered/Not Resolved]
